FAERS Safety Report 11685881 (Version 2)
Quarter: 2015Q4

REPORT INFORMATION
  Report Type: Report from Study
  Country: US (occurrence: US)
  Receive Date: 20151030
  Receipt Date: 20151124
  Transmission Date: 20160304
  Serious: Yes (Hospitalization)
  Sender: FDA-Public Use
  Company Number: US-BIOGENIDEC-2015BI142933

PATIENT
  Age: 52 Year
  Sex: Female

DRUGS (1)
  1. AVONEX [Suspect]
     Active Substance: INTERFERON BETA-1A
     Indication: MULTIPLE SCLEROSIS
     Route: 030
     Dates: start: 20150521

REACTIONS (7)
  - Panic reaction [Recovered/Resolved]
  - Memory impairment [Recovered/Resolved]
  - Stress [Recovered/Resolved]
  - Coronary artery occlusion [Recovered/Resolved]
  - Cognitive disorder [Recovered/Resolved]
  - Anxiety [Unknown]
  - Myocardial infarction [Recovered/Resolved]

NARRATIVE: CASE EVENT DATE: 2015
